FAERS Safety Report 4450187-X (Version None)
Quarter: 2004Q3

REPORT INFORMATION
  Report Type: 
  Country: None (occurrence: None)
  Receive Date: 20040914
  Receipt Date: 20040831
  Transmission Date: 20050211
  Serious: Yes (Hospitalization)
  Sender: FDA-Public Use
  Company Number: 200410422BFR

PATIENT
  Age: 70 Year
  Sex: Female

DRUGS (3)
  1. IZILOX (MOXIFLOXACIN HYDROCHLORIDE) [Suspect]
     Indication: BRONCHOPNEUMOPATHY
     Dosage: 400 MG, QD, ORAL
     Route: 048
     Dates: start: 20040713
  2. IZILOX (MOXIFLOXACIN HYDROCHLORIDE) [Suspect]
     Indication: CHRONIC OBSTRUCTIVE AIRWAYS DISEASE
     Dosage: 400 MG, QD, ORAL
     Route: 048
     Dates: start: 20040713
  3. IZILOX (MOXIFLOXACIN HYDROCHLORIDE) [Suspect]
     Indication: COUGH
     Dosage: 400 MG, QD, ORAL
     Route: 048
     Dates: start: 20040713

REACTIONS (3)
  - MALAISE [None]
  - SUPRAVENTRICULAR EXTRASYSTOLES [None]
  - VENTRICULAR EXTRASYSTOLES [None]
